FAERS Safety Report 7597902-4 (Version None)
Quarter: 2011Q3

REPORT INFORMATION
  Report Type: 
  Country: None (occurrence: None)
  Receive Date: 20110708
  Receipt Date: 20110705
  Transmission Date: 20111222
  Serious: Yes (Life-Threatening, Other)
  Sender: FDA-Public Use
  Company Number: TR-PFIZER INC-2007085237

PATIENT
  Age: 69 Year
  Sex: Male
  Weight: 84 kg

DRUGS (1)
  1. SUNITINIB MALATE [Suspect]
     Indication: METASTATIC RENAL CELL CARCINOMA
     Dosage: 50MG, DAY: 28 DAY EVERY 6 WEEK
     Route: 048
     Dates: start: 20060512, end: 20071004

REACTIONS (4)
  - BACK PAIN [None]
  - URINARY TRACT OBSTRUCTION [None]
  - HAEMATURIA [None]
  - PAIN IN EXTREMITY [None]
